FAERS Safety Report 17591601 (Version 5)
Quarter: 2020Q4

REPORT INFORMATION
  Report Type: Report from Study
  Country: US (occurrence: US)
  Receive Date: 20200327
  Receipt Date: 20201002
  Transmission Date: 20210113
  Serious: Yes (Other)
  Sender: FDA-Public Use
  Company Number: NVSC2020US083517

PATIENT
  Sex: Female
  Weight: 93.88 kg

DRUGS (4)
  1. WARFARIN [Concomitant]
     Active Substance: WARFARIN
     Indication: PULMONARY ARTERIAL HYPERTENSION
     Dosage: UNK
     Route: 065
  2. BOSENTAN. [Concomitant]
     Active Substance: BOSENTAN
     Indication: PULMONARY ARTERIAL HYPERTENSION
     Dosage: UNK
     Route: 065
  3. TREPROSTINIL. [Suspect]
     Active Substance: TREPROSTINIL
     Indication: PULMONARY ARTERIAL HYPERTENSION
     Dosage: 65 NANOGRAM PER KILOGRAM, CONT
     Route: 042
     Dates: start: 20190826
  4. ADCIRCA [Concomitant]
     Active Substance: TADALAFIL
     Indication: PULMONARY ARTERIAL HYPERTENSION
     Dosage: UNK
     Route: 065

REACTIONS (6)
  - Scab [Unknown]
  - Catheter site haemorrhage [Unknown]
  - Erectile dysfunction [Unknown]
  - Haemorrhage [Unknown]
  - Complication associated with device [Unknown]
  - Catheter site erythema [Unknown]
